FAERS Safety Report 7516128-3 (Version None)
Quarter: 2011Q2

REPORT INFORMATION
  Report Type: 
  Country: None (occurrence: None)
  Receive Date: 20110601
  Receipt Date: 20110527
  Transmission Date: 20111010
  Serious: Yes (Life-Threatening, Hospitalization)
  Sender: FDA-Public Use
  Company Number: SE-ROCHE-779539

PATIENT
  Sex: Male

DRUGS (4)
  1. EPIRUBICIN [Suspect]
     Dosage: FREQUENCY: 3 WEEKS LAST DOSE PRIOR TO SAE: 04 MAY 2011
     Route: 042
     Dates: start: 20110324
  2. ASPIRIN [Concomitant]
     Dates: start: 20110203
  3. CAPECITABINE [Suspect]
     Dosage: FREQ: BID FOR 2 WKS, 3 WKS, BID 5 X PWK, EVERY 5 WKS LAST DOSE: 04 MAY 2011
     Route: 048
     Dates: start: 20110324
  4. OMEPRAZOLE [Concomitant]
     Dates: start: 20110131

REACTIONS (2)
  - PULMONARY EMBOLISM [None]
  - GASTRIC PERFORATION [None]
